FAERS Safety Report 9478547 (Version 2)
Quarter: 2013Q4

REPORT INFORMATION
  Report Type: Spontaneous
  Country: US (occurrence: None)
  Receive Date: 20130822
  Receipt Date: 20131021
  Transmission Date: 20140711
  Serious: Yes (Hospitalization)
  Sender: FDA-Public Use
  Company Number: 2013SGN00486

PATIENT
  Age: 54 Year
  Sex: Female
  Weight: 78.2 kg

DRUGS (4)
  1. BRENTUXIMAB VEDOTIN [Suspect]
     Indication: DIFFUSE LARGE B-CELL LYMPHOMA
     Dosage: Q21D
     Route: 042
     Dates: start: 20130703, end: 20130703
  2. SYNTHROID (LEVOTHYROXINE SODIIUM) [Concomitant]
  3. METFORMIN (METFORMIN) [Concomitant]
  4. GLYBURIDE (GLYBURIDE) [Concomitant]

REACTIONS (6)
  - Lobar pneumonia [None]
  - Dysphagia [None]
  - Diffuse large B-cell lymphoma [None]
  - Malignant neoplasm progression [None]
  - Neutropenia [None]
  - Pleural effusion [None]
